FAERS Safety Report 18944748 (Version 1)
Quarter: 2021Q1

REPORT INFORMATION
  Report Type: Spontaneous
  Country: IN (occurrence: IN)
  Receive Date: 20210226
  Receipt Date: 20210226
  Transmission Date: 20210420
  Serious: Yes (Other)
  Sender: FDA-Public Use
  Company Number: IN-SUN PHARMACEUTICAL INDUSTRIES LTD-2021R1-281625

PATIENT
  Sex: Female
  Weight: 1.86 kg

DRUGS (3)
  1. ZINC ACETATE [Suspect]
     Active Substance: ZINC ACETATE
     Indication: HEPATO-LENTICULAR DEGENERATION
     Dosage: 50 MILLIGRAM, TID
     Route: 064
  2. OMEPRAZOLE. [Suspect]
     Active Substance: OMEPRAZOLE
     Indication: HAEMATEMESIS
     Dosage: 20 MILLIGRAM, OD
     Route: 064
  3. PROPRANOLOL [Suspect]
     Active Substance: PROPRANOLOL HYDROCHLORIDE
     Indication: VARICES OESOPHAGEAL
     Dosage: 20 MILLIGRAM, BID
     Route: 064

REACTIONS (8)
  - Foetal exposure during pregnancy [Unknown]
  - Limb reduction defect [Unknown]
  - Microcephaly [Unknown]
  - Neonatal cholestasis [Unknown]
  - Low birth weight baby [Unknown]
  - Respiratory distress [Unknown]
  - Premature baby [Unknown]
  - Patent ductus arteriosus [Unknown]
